FAERS Safety Report 5188811-9 (Version None)
Quarter: 2006Q4

REPORT INFORMATION
  Report Type: 
  Country: None (occurrence: None)
  Receive Date: 20061221
  Receipt Date: 20061006
  Transmission Date: 20070319
  Serious: Yes (Other)
  Sender: FDA-Public Use
  Company Number: US-BRISTOL-MYERS SQUIBB COMPANY-13533641

PATIENT
  Age: 36 Year
  Sex: Male

DRUGS (2)
  1. BARACLUDE TABS [Suspect]
     Indication: HEPATITIS B
     Route: 048
     Dates: start: 20050901, end: 20060920
  2. PAXIL [Concomitant]
     Dates: start: 20050801

REACTIONS (1)
  - VIRAL LOAD INCREASED [None]
